FAERS Safety Report 7680993-X (Version None)
Quarter: 2011Q3

REPORT INFORMATION
  Report Type: 
  Country: None (occurrence: None)
  Receive Date: 20110812
  Receipt Date: 20110805
  Transmission Date: 20111222
  Serious: Yes (Other)
  Sender: FDA-Public Use
  Company Number: US-JNJFOC-20110801172

PATIENT

DRUGS (4)
  1. DOXORUBICIN HYDROCHLORIDE [Suspect]
     Indication: ADENOID CYSTIC CARCINOMA
     Route: 042
  2. ZINECARD [Concomitant]
     Indication: PROPHYLAXIS
     Dosage: (DEXRAZOXANE/DOXORUBICIN RATIO OF 10:1) ON DAYS 1 AND 8 STARTING WITH THE 8TH CYCLE
     Route: 042
  3. BORTEZOMIB [Suspect]
     Indication: ADENOID CYSTIC CARCINOMA
     Dosage: ADMINISTERED OVER 3-5 SECONDS, FOLLOWED BY 1 WEEK OFF TREATMENT
     Route: 042
  4. DOXORUBICIN HYDROCHLORIDE [Suspect]
     Route: 042

REACTIONS (2)
  - NEUROTOXICITY [None]
  - OFF LABEL USE [None]
